FAERS Safety Report 5812147-3 (Version None)
Quarter: 2008Q3

REPORT INFORMATION
  Report Type: 
  Country: None (occurrence: None)
  Receive Date: 20080714
  Receipt Date: 20080704
  Transmission Date: 20090109
  Serious: Yes (Life-Threatening)
  Sender: FDA-Public Use
  Company Number: 2008JP003006

PATIENT
  Age: 8 Month
  Sex: Female
  Weight: 3.8 kg

DRUGS (6)
  1. PROGRAF [Suspect]
     Indication: LIVER TRANSPLANT
     Dosage: 0.3 MG, BID, UNKNOWN
     Dates: start: 20080607, end: 20080624
  2. SULFAMETHOXAZOLE AND TRIMETHOPRIM [Concomitant]
  3. SUCRALFATE [Concomitant]
  4. URSO 250 [Concomitant]
  5. ASTRIC (ACICLOVIR) [Concomitant]
  6. LEVOTHYROXINE SODIUM [Concomitant]

REACTIONS (3)
  - CARDIAC FAILURE [None]
  - CARDIAC HYPERTROPHY [None]
  - PERICARDIAL EFFUSION [None]
